FAERS Safety Report 7116094-9 (Version None)
Quarter: 2010Q4

REPORT INFORMATION
  Report Type: 
  Country: None (occurrence: None)
  Receive Date: 20101122
  Receipt Date: 20101119
  Transmission Date: 20110411
  Serious: Yes (Death)
  Sender: FDA-Public Use
  Company Number: CN-ROCHE-742955

PATIENT
  Sex: Female

DRUGS (3)
  1. MYCOPHENOLATE MOFETIL [Suspect]
     Indication: RENAL TRANSPLANT
     Route: 048
     Dates: start: 19990423
  2. CYCLOSPORINE [Suspect]
     Indication: RENAL TRANSPLANT
     Route: 048
     Dates: start: 19990423
  3. STEROID NOS [Suspect]
     Indication: RENAL TRANSPLANT
     Route: 048
     Dates: start: 19990423

REACTIONS (1)
  - RENAL CANCER [None]
